FAERS Safety Report 16458905 (Version 1)
Quarter: 2019Q2

REPORT INFORMATION
  Report Type: Spontaneous
  Country: US (occurrence: US)
  Receive Date: 20190620
  Receipt Date: 20190620
  Transmission Date: 20190711
  Serious: No
  Sender: FDA-Public Use
  Company Number: US-THERAPEUTICSMD-2019TMD00987

PATIENT
  Age: 65 Year
  Sex: Female
  Weight: 68.03 kg

DRUGS (4)
  1. IMVEXXY [Suspect]
     Active Substance: ESTRADIOL
     Dosage: 10 ?G, 2X/WEEK (ON MONDAYS AND THURSDAYS) BEFORE BED
     Route: 067
  2. UNSPECIFIED MEDICINE FOR HIGH BLOOD PRESSURE [Concomitant]
  3. IMVEXXY [Suspect]
     Active Substance: ESTRADIOL
     Indication: VULVOVAGINAL DRYNESS
     Dosage: 10 ?G, 1X/DAY BEFORE BED
     Route: 067
     Dates: start: 201812
  4. UNSPECIFIED MEDICINE FOR HIGH CHOLESTEROL [Concomitant]

REACTIONS (3)
  - Off label use [Not Recovered/Not Resolved]
  - Vaginal discharge [Unknown]
  - Malabsorption [Unknown]

NARRATIVE: CASE EVENT DATE: 201812
